FAERS Safety Report 14507753 (Version 1)
Quarter: 2018Q1

REPORT INFORMATION
  Report Type: Spontaneous
  Country: US (occurrence: US)
  Receive Date: 20180208
  Receipt Date: 20180208
  Transmission Date: 20180509
  Serious: No
  Sender: FDA-Public Use
  Company Number: US-PURDUE-USA-2018-0142400

PATIENT
  Sex: Female

DRUGS (3)
  1. BUTRANS [Suspect]
     Active Substance: BUPRENORPHINE
     Indication: PAIN
     Dosage: UNK MCG/HR, UNK
     Route: 062
  2. BUTRANS [Suspect]
     Active Substance: BUPRENORPHINE
     Indication: ARTHRALGIA
  3. BUTRANS [Suspect]
     Active Substance: BUPRENORPHINE
     Indication: MYALGIA

REACTIONS (4)
  - Pain [Unknown]
  - Breakthrough pain [Unknown]
  - Drug dose titration not performed [Unknown]
  - Drug withdrawal syndrome [Unknown]
